FAERS Safety Report 8377455-3 (Version None)
Quarter: 2012Q2

REPORT INFORMATION
  Report Type: 
  Country: None (occurrence: None)
  Receive Date: 20120522
  Receipt Date: 20111201
  Transmission Date: 20120825
  Serious: No
  Sender: FDA-Public Use
  Company Number: US-ASTRAZENECA-2011SE73110

PATIENT
  Age: 64 Year
  Sex: Female
  Weight: 67.6 kg

DRUGS (3)
  1. PRILOSEC [Suspect]
     Dosage: TWICE DAILY
     Route: 048
  2. PROTONIX [Concomitant]
  3. PREVACID [Concomitant]

REACTIONS (10)
  - HIATUS HERNIA [None]
  - ASPIRATION [None]
  - ADVERSE EVENT [None]
  - DRUG INEFFECTIVE [None]
  - DYSPEPSIA [None]
  - LIVER FUNCTION TEST ABNORMAL [None]
  - CHANGE OF BOWEL HABIT [None]
  - WEIGHT INCREASED [None]
  - GASTROOESOPHAGEAL REFLUX DISEASE [None]
  - ANAL SPHINCTER ATONY [None]
